FAERS Safety Report 20077941 (Version 2)
Quarter: 2021Q4

REPORT INFORMATION
  Report Type: Spontaneous
  Country: NG (occurrence: NG)
  Receive Date: 20211116
  Receipt Date: 20211120
  Transmission Date: 20220303
  Serious: Yes (Hospitalization, Other)
  Sender: FDA-Public Use
  Company Number: NG-MLMSERVICE-20211101-3197749-2

PATIENT
  Age: 19 Year
  Sex: Male

DRUGS (19)
  1. METHOTREXATE [Suspect]
     Active Substance: METHOTREXATE
     Indication: Prophylaxis
     Dosage: 12 MG; IT DAY 8, 15, 22, 29
     Route: 037
     Dates: start: 2020
  2. CYCLOPHOSPHAMIDE [Suspect]
     Active Substance: CYCLOPHOSPHAMIDE
     Indication: Philadelphia positive acute lymphocytic leukaemia
     Dosage: 750 MG/M2; IV DAY 1, 15
     Route: 042
     Dates: start: 2020
  3. HYDROCORTISONE [Suspect]
     Active Substance: HYDROCORTISONE
     Indication: Prophylaxis
     Dosage: 20 MG; IT DAY 8, 15, 22, 29
     Route: 037
     Dates: start: 2020
  4. MERCAPTOPURINE [Suspect]
     Active Substance: MERCAPTOPURINE
     Indication: Philadelphia positive acute lymphocytic leukaemia
     Dosage: 60 MG/M2 ; PO DAY 1-28
     Route: 048
     Dates: start: 2020
  5. IMATINIB MESYLATE [Suspect]
     Active Substance: IMATINIB MESYLATE
     Indication: Philadelphia positive acute lymphocytic leukaemia
     Dates: start: 2020
  6. CYTARABINE [Suspect]
     Active Substance: CYTARABINE
     Indication: Prophylaxis
     Dosage: 30 MG; IT DAY 8, 15, 22, 29
     Route: 037
     Dates: start: 2020
  7. CYTARABINE [Suspect]
     Active Substance: CYTARABINE
     Indication: Philadelphia positive acute lymphocytic leukaemia
     Dosage: 75 MG/M2; IV DAY 1-4, 8-11, 15-18, 22-25
     Route: 042
     Dates: start: 2020
  8. CLOTRIMAZOLE [Concomitant]
     Active Substance: CLOTRIMAZOLE
     Indication: Tinea versicolour
     Route: 061
     Dates: start: 2020
  9. FLUCONAZOLE [Concomitant]
     Active Substance: FLUCONAZOLE
     Indication: Tinea versicolour
     Dates: start: 2020
  10. ARTESUNATE [Concomitant]
     Active Substance: ARTESUNATE
     Indication: Plasmodium falciparum infection
     Dates: start: 202005
  11. VITAMIN C [Concomitant]
     Active Substance: ASCORBIC ACID
  12. FOLIC ACID [Concomitant]
     Active Substance: FOLIC ACID
  13. VITAMIN B-COMPLEX [Concomitant]
     Active Substance: DEXPANTHENOL\NIACINAMIDE\PYRIDOXINE HYDROCHLORIDE\RIBOFLAVIN 5^-PHOSPHATE SODIUM\THIAMINE HYDROCHLOR
  14. METRONIDAZOLE [Concomitant]
     Active Substance: METRONIDAZOLE
     Indication: Febrile neutropenia
     Dates: start: 2020
  15. CIPROFLOXACIN [Concomitant]
     Active Substance: CIPROFLOXACIN
     Indication: Febrile neutropenia
     Dates: start: 2020
  16. SULFAMETHOXAZOLE\TRIMETHOPRIM [Concomitant]
     Active Substance: SULFAMETHOXAZOLE\TRIMETHOPRIM
     Indication: Antifungal prophylaxis
     Dates: start: 2020
  17. ACYCLOVIR [Concomitant]
     Active Substance: ACYCLOVIR
     Dates: start: 2020
  18. GRANULOCYTE COLONY STIMULATING FACT [Concomitant]
     Indication: Febrile neutropenia
     Dates: start: 2020
  19. PROGUANIL [Concomitant]
     Active Substance: PROGUANIL

REACTIONS (2)
  - Subcutaneous abscess [Unknown]
  - Staphylococcal infection [Unknown]

NARRATIVE: CASE EVENT DATE: 20200101
